FAERS Safety Report 6538820-X (Version None)
Quarter: 2010Q1

REPORT INFORMATION
  Report Type: 
  Country: None (occurrence: None)
  Receive Date: 20100112
  Receipt Date: 20100106
  Transmission Date: 20100710
  Serious: Yes (Other)
  Sender: FDA-Public Use
  Company Number: 2009SP027742

PATIENT
  Age: 23 Year
  Sex: Female

DRUGS (7)
  1. DESLORATADINE [Suspect]
     Indication: HYPERSENSITIVITY
     Dosage: 1 DF;QD
     Dates: start: 20080119, end: 20080121
  2. FLUANXOL (FLUPENTIXOL) [Concomitant]
  3. VENTOLIN [Concomitant]
  4. SERETIDE [Concomitant]
  5. RHINOFLUIMUCIL [Concomitant]
  6. POLERY (CODEINE, ERYSIMUM) [Concomitant]
  7. MONOZECLAR [Concomitant]

REACTIONS (2)
  - HALLUCINATION [None]
  - PSYCHIATRIC DECOMPENSATION [None]
